FAERS Safety Report 13756583 (Version 3)
Quarter: 2017Q4

REPORT INFORMATION
  Report Type: Report from Study
  Country: FR (occurrence: FR)
  Receive Date: 20170714
  Receipt Date: 20171114
  Transmission Date: 20180320
  Serious: Yes (Death, Hospitalization, Other)
  Sender: FDA-Public Use
  Company Number: FR-PFIZER INC-2017290180

PATIENT
  Age: 79 Year
  Sex: Male
  Weight: 91 kg

DRUGS (8)
  1. INNOHEP [Concomitant]
     Active Substance: TINZAPARIN SODIUM
     Indication: DEEP VEIN THROMBOSIS
     Dosage: UNK
     Route: 030
     Dates: start: 20170317
  2. MONOTILDIEM [Concomitant]
     Active Substance: DILTIAZEM
     Indication: HYPERTENSION
     Dosage: UNK
     Route: 048
  3. ZOLEDRONIC ACID [Suspect]
     Active Substance: ZOLEDRONIC ACID
     Indication: OSTEOSARCOMA
     Dosage: 4 MG, CYCLIC (1 PER CYCLE)
     Route: 042
     Dates: start: 20170616, end: 20170616
  4. SIROLIMUS. [Suspect]
     Active Substance: SIROLIMUS
     Indication: OSTEOSARCOMA
     Dosage: 4 MG, DAILY
     Route: 048
     Dates: start: 20170616, end: 20170625
  5. ENDOXAN [Suspect]
     Active Substance: CYCLOPHOSPHAMIDE
     Indication: OSTEOSARCOMA
     Dosage: 100 MG, DAILY
     Route: 048
     Dates: start: 20170615, end: 20170621
  6. FLECAINE [Concomitant]
     Active Substance: FLECAINIDE
     Indication: HYPERTENSION
     Dosage: UNK
     Route: 048
  7. ULTIBRO BREEZHALER [Concomitant]
     Active Substance: GLYCOPYRRONIUM\INDACATEROL
     Indication: CHRONIC OBSTRUCTIVE PULMONARY DISEASE
     Dosage: UNK
  8. METHOTREXATE SODIUM. [Suspect]
     Active Substance: METHOTREXATE SODIUM
     Indication: OSTEOSARCOMA
     Dosage: 5 MG, CYCLIC (CUMULATIVE DOSE SINCE 1ST ADMINISTRATION OF 20 MG)
     Route: 048
     Dates: start: 20170615, end: 20170625

REACTIONS (2)
  - Lung infection [Fatal]
  - Lymphopenia [Unknown]

NARRATIVE: CASE EVENT DATE: 20170625
